FAERS Safety Report 24073361 (Version 4)
Quarter: 2024Q3

REPORT INFORMATION
  Report Type: Report from Study
  Country: CA (occurrence: CA)
  Receive Date: 20240710
  Receipt Date: 20240918
  Transmission Date: 20241016
  Serious: Yes (Hospitalization, Other)
  Sender: GILEAD
  Company Number: CA-GILEAD-2024-0677874

PATIENT
  Sex: Female

DRUGS (1)
  1. SOFOSBUVIR\VELPATASVIR [Suspect]
     Active Substance: SOFOSBUVIR\VELPATASVIR
     Indication: Hepatitis C
     Dosage: 400 MG PO DAILY
     Route: 048
     Dates: start: 20240607, end: 202409

REACTIONS (7)
  - Aggression [Unknown]
  - Crohn^s disease [Recovering/Resolving]
  - Poisoning [Unknown]
  - Fatigue [Unknown]
  - Headache [Recovered/Resolved]
  - Product dose omission issue [Unknown]
  - Treatment noncompliance [Unknown]

NARRATIVE: CASE EVENT DATE: 20240101
